FAERS Safety Report 9266807 (Version 1)
Quarter: 2013Q2

REPORT INFORMATION
  Report Type: Spontaneous
  Country: US (occurrence: US)
  Receive Date: 20130502
  Receipt Date: 20130502
  Transmission Date: 20140414
  Serious: No
  Sender: FDA-Public Use
  Company Number: US-B.I. PHARMACEUTICALS,INC./RIDGEFIELD-2013-BI-10911BP

PATIENT
  Age: 62 Year
  Sex: Female
  Weight: 66 kg

DRUGS (5)
  1. MIRAPEX [Suspect]
     Indication: PARKINSON^S DISEASE
     Dosage: 0.75 MG
     Route: 048
     Dates: start: 2009
  2. MIRAPEX [Suspect]
     Dosage: 1.5 MG
     Route: 048
     Dates: start: 2009
  3. SINEMET [Concomitant]
     Indication: PARKINSON^S DISEASE
     Route: 048
  4. ANAFRANIL [Concomitant]
     Indication: OBSESSIVE-COMPULSIVE DISORDER
     Dosage: 150 MG
     Route: 048
  5. COMTAN [Concomitant]
     Indication: PARKINSON^S DISEASE
     Dosage: 600 MG
     Route: 048

REACTIONS (5)
  - Urinary incontinence [Not Recovered/Not Resolved]
  - Libido increased [Not Recovered/Not Resolved]
  - Increased appetite [Not Recovered/Not Resolved]
  - Obsessive-compulsive disorder [Not Recovered/Not Resolved]
  - Insomnia [Not Recovered/Not Resolved]
